FAERS Safety Report 9413831 (Version 1)
Quarter: 2013Q3

REPORT INFORMATION
  Report Type: Spontaneous
  Country: US (occurrence: US)
  Receive Date: 20130723
  Receipt Date: 20130723
  Transmission Date: 20140515
  Serious: Yes (Other)
  Sender: FDA-Public Use
  Company Number: US-AMGEN-USASP2013050086

PATIENT
  Age: 64 Year
  Sex: Female

DRUGS (1)
  1. ENBREL [Suspect]
     Indication: RHEUMATOID ARTHRITIS
     Dosage: 25 MG, UNK
     Route: 065
     Dates: start: 20040101

REACTIONS (6)
  - Depression [Unknown]
  - Arthritis [Unknown]
  - Hypokinesia [Unknown]
  - Gait disturbance [Unknown]
  - Insomnia [Unknown]
  - Injection site pain [Not Recovered/Not Resolved]
